FAERS Safety Report 4609734-7 (Version None)
Quarter: 2005Q1

REPORT INFORMATION
  Report Type: 
  Country: None (occurrence: None)
  Receive Date: 20050314
  Receipt Date: 20050314
  Transmission Date: 20050727
  Serious: Yes (Other)
  Sender: FDA-Public Use
  Company Number: None

PATIENT
  Sex: Male
  Weight: 78.4723 kg

DRUGS (16)
  1. GEMCITABINE 100MG/ML LILLY [Suspect]
     Indication: PANCREATIC CARCINOMA
     Dosage: 1000MG/M2 DAY 1 + 15 INTRAVENOU
     Route: 042
     Dates: start: 20050216, end: 20050310
  2. CISPLATIN [Suspect]
  3. BEVACIZUMAB GENENTECH [Suspect]
     Indication: PANCREATIC CARCINOMA
     Dosage: 10 MG/KG DAY 1 + 15 INTRAVENOU
     Route: 042
     Dates: start: 20050216, end: 20050310
  4. DYNACIRC CR [Concomitant]
  5. ATENOLOL [Concomitant]
  6. ACIPHEX [Concomitant]
  7. LOVENOX [Concomitant]
  8. GLYCOLAX [Concomitant]
  9. DURAGESIC-100 [Concomitant]
  10. TRAZADONE [Concomitant]
  11. LORAZEPAM [Concomitant]
  12. SENNA [Concomitant]
  13. ZOFRAN [Concomitant]
  14. DECADRON [Concomitant]
  15. ALOXI [Concomitant]
  16. COMPAZINE [Concomitant]

REACTIONS (3)
  - BACK PAIN [None]
  - ERYTHEMA [None]
  - SYNCOPE [None]
